FAERS Safety Report 10072085 (Version 1)
Quarter: 2014Q2

REPORT INFORMATION
  Report Type: Spontaneous
  Country: US (occurrence: None)
  Receive Date: 20140410
  Receipt Date: 20140410
  Transmission Date: 20141212
  Serious: Yes (Hospitalization, Disabling, Other)
  Sender: FDA-Public Use
  Company Number: None

PATIENT
  Age: 62 Year
  Sex: Female
  Weight: 70.76 kg

DRUGS (9)
  1. XARELTO [Suspect]
     Indication: THROMBOSIS
     Dosage: 15 MG 2 PILLS 15 MG TWICE A DAY
     Route: 048
     Dates: start: 20131209
  2. ALPRAZOLAM 1 TAB 0.5 TAB 3 X DAILY [Concomitant]
     Dosage: 1 TAB 0.5 TAB 3 X DAILY
  3. GABAPENTIN 100 MG CAPS 3 TIMES DAILY [Concomitant]
  4. METOPROLOL 1 TAB DAILY [Concomitant]
  5. HYOSGNINE [Concomitant]
  6. LOVASTATIN  3 TABS ONCE DAILY 20 MG [Concomitant]
  7. NEXIUM 40 MG 1 DAILY [Concomitant]
  8. OMEGA 3-6-9 COMPLEX DIETARY SUPPLEMENT [Concomitant]
  9. NATURE MADE SOFT GEL D3 5000 I.U. [Concomitant]

REACTIONS (6)
  - Bone pain [None]
  - Dyspnoea [None]
  - Dizziness [None]
  - Chest pain [None]
  - Memory impairment [None]
  - Amnesia [None]
